FAERS Safety Report 17534112 (Version 1)
Quarter: 2020Q1

REPORT INFORMATION
  Report Type: Report from Study
  Country: EG (occurrence: EG)
  Receive Date: 20200312
  Receipt Date: 20200312
  Transmission Date: 20200409
  Serious: Yes (Other)
  Sender: FDA-Public Use
  Company Number: EG-BAYER-2020-038783

PATIENT
  Age: 29 Year
  Sex: Female

DRUGS (6)
  1. BETAFERON [Suspect]
     Active Substance: INTERFERON BETA-1B
     Indication: MULTIPLE SCLEROSIS
     Dosage: UNK WHOLE VIAL
     Route: 058
     Dates: start: 201809, end: 20200217
  2. ELTROXIN [Concomitant]
     Active Substance: LEVOTHYROXINE
     Indication: THYROID DISORDER
     Dosage: 50 MG, QD
     Dates: start: 201911
  3. HIPAMAX PLUS [Concomitant]
     Indication: HEPATIC ENZYME INCREASED
     Dosage: 1 DF, BID
     Dates: start: 202001, end: 202002
  4. BETAFERON [Suspect]
     Active Substance: INTERFERON BETA-1B
     Indication: MULTIPLE SCLEROSIS
     Dosage: 0.5 DF
  5. ELTROXIN [Concomitant]
     Active Substance: LEVOTHYROXINE
     Indication: THYROID DISORDER
     Dosage: 100 MG, QD INCREASED
     Dates: start: 201911
  6. INDERAL [Concomitant]
     Active Substance: PROPRANOLOL HYDROCHLORIDE
     Indication: HEART RATE ABNORMAL
     Dosage: 1 DF, QD
     Dates: start: 201911

REACTIONS (7)
  - Weight increased [Recovering/Resolving]
  - Lack of injection site rotation [None]
  - Hyperthyroidism [Recovering/Resolving]
  - Incorrect dose administered [Not Recovered/Not Resolved]
  - Laziness [Recovering/Resolving]
  - Hepatic enzyme increased [Recovered/Resolved]
  - Injection site discolouration [Not Recovered/Not Resolved]

NARRATIVE: CASE EVENT DATE: 201809
